FAERS Safety Report 8957094 (Version 1)
Quarter: 2012Q4

REPORT INFORMATION
  Report Type: 
  Country: US (occurrence: US)
  Receive Date: 20121211
  Receipt Date: 20121211
  Transmission Date: 20130627
  Serious: No
  Sender: FDA-Public Use
  Company Number: US-TEVA-374954USA

PATIENT
  Sex: Male

DRUGS (1)
  1. FENTORA [Suspect]
     Indication: PAIN
     Dosage: 1200 Microgram Daily; 1/2 tablet
     Route: 002

REACTIONS (2)
  - Feeling abnormal [Recovered/Resolved]
  - Off label use [Unknown]
